FAERS Safety Report 18769439 (Version 1)
Quarter: 2021Q1

REPORT INFORMATION
  Report Type: Spontaneous
  Country: US (occurrence: US)
  Receive Date: 20210121
  Receipt Date: 20210121
  Transmission Date: 20210419
  Serious: No
  Sender: FDA-Public Use
  Company Number: US-009507513-2101USA006858

PATIENT
  Sex: Female

DRUGS (2)
  1. NEXPLANON [Suspect]
     Active Substance: ETONOGESTREL
     Dosage: ROD (IN THE ARM)
     Route: 059
     Dates: start: 2013
  2. NEXPLANON [Suspect]
     Active Substance: ETONOGESTREL
     Dosage: ROD (IN THE ARM)
     Route: 059

REACTIONS (7)
  - Complication of device removal [Not Recovered/Not Resolved]
  - Overdose [Unknown]
  - Device issue [Not Recovered/Not Resolved]
  - Complication associated with device [Not Recovered/Not Resolved]
  - No adverse event [Unknown]
  - Incorrect product administration duration [Unknown]
  - Device use issue [Unknown]

NARRATIVE: CASE EVENT DATE: 2016
